FAERS Safety Report 13967273 (Version 1)
Quarter: 2017Q3

REPORT INFORMATION
  Report Type: Report from Study
  Country: CN (occurrence: CN)
  Receive Date: 20170914
  Receipt Date: 20170914
  Transmission Date: 20171128
  Serious: Yes (Death)
  Sender: FDA-Public Use
  Company Number: CN-ROCHE-1883237

PATIENT
  Sex: Female
  Weight: 52 kg

DRUGS (1)
  1. AVASTIN [Suspect]
     Active Substance: BEVACIZUMAB
     Indication: COLON CANCER
     Route: 041
     Dates: start: 20121216

REACTIONS (7)
  - Infection [Fatal]
  - Abdominal infection [Unknown]
  - Weight decreased [Unknown]
  - Abdominal pain [Unknown]
  - Intestinal perforation [Fatal]
  - Hernia [Unknown]
  - Nausea [Unknown]
